FAERS Safety Report 4977732-X (Version None)
Quarter: 2006Q1

REPORT INFORMATION
  Report Type: 
  Country: None (occurrence: None)
  Receive Date: 20060215
  Receipt Date: 20051024
  Transmission Date: 20060701
  Serious: Yes (Other)
  Sender: FDA-Public Use
  Company Number: MC200500957

PATIENT
  Age: 58 Year
  Sex: Male
  Weight: 126 kg

DRUGS (6)
  1. ANGIOMAX [Suspect]
     Dosage: 94 MG/KG, BOLUS, IV BOLUS
     Route: 040
  2. ANGIOMAX [Suspect]
     Dosage: 1.75 MG/KG, HR, INTRAVENOUS
     Route: 042
  3. INTEGRILIN [Concomitant]
  4. ADENOSINE [Concomitant]
  5. NTG (GLYCERYL TRINITRATE) [Concomitant]
  6. PLAVIX [Concomitant]

REACTIONS (1)
  - STENT OCCLUSION [None]
